FAERS Safety Report 4984913-8 (Version None)
Quarter: 2006Q2

REPORT INFORMATION
  Report Type: 
  Country: None (occurrence: None)
  Receive Date: 20060426
  Receipt Date: 20060426
  Transmission Date: 20061013
  Serious: Yes (Other)
  Sender: FDA-Public Use
  Company Number: None

PATIENT
  Age: 45 Year
  Sex: Female
  Weight: 52.1637 kg

DRUGS (2)
  1. NEOSPORIN [Suspect]
     Indication: LACERATION
  2. POLYSPORIN [Suspect]

REACTIONS (3)
  - FEAR [None]
  - PANIC REACTION [None]
  - SKIN DISCOLOURATION [None]
